FAERS Safety Report 17025752 (Version 3)
Quarter: 2021Q3

REPORT INFORMATION
  Report Type: Spontaneous
  Country: US (occurrence: US)
  Receive Date: 20191113
  Receipt Date: 20210804
  Transmission Date: 20211014
  Serious: Yes (Other)
  Sender: FDA-Public Use
  Company Number: US-PFIZER INC-2019480910

PATIENT
  Age: 66 Year
  Sex: Male

DRUGS (1)
  1. CLINDAMYCIN. [Suspect]
     Active Substance: CLINDAMYCIN
     Indication: ANTIBIOTIC THERAPY
     Dosage: 300 MG, UNK

REACTIONS (4)
  - Oesophagitis [Unknown]
  - Oesophagitis chemical [Unknown]
  - Chemical burn of respiratory tract [Unknown]
  - Laryngitis [Unknown]
